FAERS Safety Report 8349818-3 (Version None)
Quarter: 2012Q2

REPORT INFORMATION
  Report Type: 
  Country: None (occurrence: None)
  Receive Date: 20120510
  Receipt Date: 20120507
  Transmission Date: 20120825
  Serious: Yes (Death)
  Sender: FDA-Public Use
  Company Number: US-CELGENEUS-163-21880-12050829

PATIENT
  Sex: Male

DRUGS (10)
  1. REVLIMID [Suspect]
     Dosage: 10 MILLIGRAM
     Route: 048
     Dates: start: 20110301
  2. OXYCONTIN [Concomitant]
     Dosage: 60 MILLIGRAM
     Route: 048
  3. FUROSEMIDE [Concomitant]
     Dosage: 40 MILLIGRAM
     Route: 048
  4. GABAPENTIN [Concomitant]
     Dosage: 300 MILLIGRAM
     Route: 048
  5. VELCADE [Concomitant]
     Dosage: 3.5 MILLIGRAM
     Route: 065
  6. OMEPRAZOLE [Concomitant]
     Dosage: 40 MILLIGRAM
     Route: 048
  7. REVLIMID [Suspect]
     Indication: MULTIPLE MYELOMA
     Dosage: 25 MILLIGRAM
     Route: 048
     Dates: start: 20091210, end: 20100101
  8. REVLIMID [Suspect]
     Dosage: 25 MILLIGRAM
     Route: 048
     Dates: start: 20120101
  9. DEXAMETHASONE [Concomitant]
     Dosage: 1.5 MILLIGRAM
     Route: 048
  10. HYDROCODONE BITARTRATE AND ACETAMINOPHEN [Concomitant]
     Dosage: 5-500MG
     Route: 048

REACTIONS (1)
  - DEATH [None]
